FAERS Safety Report 23141623 (Version 1)
Quarter: 2023Q4

REPORT INFORMATION
  Report Type: Spontaneous
  Country: JP (occurrence: JP)
  Receive Date: 20231103
  Receipt Date: 20231103
  Transmission Date: 20240109
  Serious: Yes (Other)
  Sender: FDA-Public Use
  Company Number: JP-AMGEN-JPNSP2023193379

PATIENT
  Age: 7 Year

DRUGS (1)
  1. BLINCYTO [Suspect]
     Active Substance: BLINATUMOMAB
     Indication: Product used for unknown indication
     Dosage: UNK, DRIP INFUSION
     Route: 042

REACTIONS (2)
  - Disease recurrence [Not Recovered/Not Resolved]
  - Transplant [Unknown]

NARRATIVE: CASE EVENT DATE: 20220101
